FAERS Safety Report 11636183 (Version 2)
Quarter: 2015Q4

REPORT INFORMATION
  Report Type: Spontaneous
  Country: CO (occurrence: CO)
  Receive Date: 20151016
  Receipt Date: 20151105
  Transmission Date: 20160304
  Serious: Yes (Other)
  Sender: FDA-Public Use
  Company Number: CO-AMGEN-COLSP2015107630

PATIENT
  Age: 54 Year
  Sex: Female

DRUGS (5)
  1. METHOTREXATE [Concomitant]
     Active Substance: METHOTREXATE
     Dosage: 4 DF, WEEKLY
     Dates: start: 1995
  2. NAPROXEN. [Concomitant]
     Active Substance: NAPROXEN
     Dosage: UNK, AS NEEDED
     Dates: start: 2005
  3. ENBREL [Suspect]
     Active Substance: ETANERCEPT
     Indication: RHEUMATOID ARTHRITIS
     Dosage: 50 MG, WEEKLY
     Route: 058
     Dates: start: 2010
  4. PREDNISOLONE. [Concomitant]
     Active Substance: PREDNISOLONE
     Dosage: 5 MG, DAILY
     Dates: start: 1995
  5. FOLIC ACID. [Concomitant]
     Active Substance: FOLIC ACID
     Dosage: 1 DF, DAILY
     Dates: start: 1995

REACTIONS (5)
  - Blindness [Not Recovered/Not Resolved]
  - Gastric infection [Recovering/Resolving]
  - Dizziness [Not Recovered/Not Resolved]
  - Fatigue [Not Recovered/Not Resolved]
  - Vertigo [Not Recovered/Not Resolved]

NARRATIVE: CASE EVENT DATE: 2014
